FAERS Safety Report 8321964-X (Version None)
Quarter: 2012Q2

REPORT INFORMATION
  Report Type: 
  Country: None (occurrence: None)
  Receive Date: 20120426
  Receipt Date: 20120417
  Transmission Date: 20120825
  Serious: Yes (Hospitalization, Other)
  Sender: FDA-Public Use
  Company Number: 1262075

PATIENT
  Age: 42 Year
  Sex: Female
  Weight: 42 kg

DRUGS (12)
  1. (TINZAPARIN) [Concomitant]
  2. METRONIDAZOLE [Concomitant]
  3. PIPERACILLIN AND TAZOBACTAM [Suspect]
     Indication: ABDOMINAL SEPSIS
     Dosage: 13.5 G GRAM(S), INTRAVENOUS (NOT OTHERWISE SPECIFIED)
     Route: 042
     Dates: start: 20111014, end: 20111020
  4. ACETAMINOPHEN [Suspect]
     Indication: POSTOPERATIVE ANALGESIA
     Dosage: SEE IMAGE
     Route: 042
     Dates: start: 20111024
  5. ACETAMINOPHEN [Suspect]
     Indication: POSTOPERATIVE ANALGESIA
     Dosage: SEE IMAGE
     Route: 042
     Dates: start: 20111014, end: 20111019
  6. MEROPENEM [Concomitant]
  7. POTASSIUM CHLORIDE [Concomitant]
  8. ALBUTEROL [Concomitant]
  9. MORPHINE [Concomitant]
  10. PENTASA [Concomitant]
  11. OMEPRAZOLE [Concomitant]
  12. FUROSEMIDE [Concomitant]

REACTIONS (9)
  - DISEASE COMPLICATION [None]
  - GAMMA-GLUTAMYLTRANSFERASE INCREASED [None]
  - FAECAL VOLUME INCREASED [None]
  - ASPARTATE AMINOTRANSFERASE INCREASED [None]
  - COAGULOPATHY [None]
  - PROTHROMBIN TIME PROLONGED [None]
  - CROHN'S DISEASE [None]
  - ACCIDENTAL OVERDOSE [None]
  - BLOOD ALKALINE PHOSPHATASE INCREASED [None]
